FAERS Safety Report 5475385-8 (Version None)
Quarter: 2007Q4

REPORT INFORMATION
  Report Type: 
  Country: None (occurrence: None)
  Receive Date: 20071003
  Receipt Date: 20070926
  Transmission Date: 20080405
  Serious: Yes (Death, Other)
  Sender: FDA-Public Use
  Company Number: PHBS2007BR16195

PATIENT
  Age: 53 Year
  Sex: Female
  Weight: 90 kg

DRUGS (1)
  1. VOLTAREN [Suspect]
     Indication: PAIN
     Dosage: 75 MG/DAY
     Route: 030
     Dates: start: 20020101

REACTIONS (7)
  - APPLICATION SITE ANAESTHESIA [None]
  - APPLICATION SITE ERYTHEMA [None]
  - APPLICATION SITE NECROSIS [None]
  - APPLICATION SITE PAIN [None]
  - GASTROINTESTINAL CARCINOMA [None]
  - METASTASES TO LIVER [None]
  - UPPER LIMB DEFORMITY [None]
